FAERS Safety Report 8598253-1 (Version None)
Quarter: 2012Q3

REPORT INFORMATION
  Report Type: 
  Country: None (occurrence: None)
  Receive Date: 20120816
  Receipt Date: 20120807
  Transmission Date: 20120928
  Serious: Yes (Hospitalization)
  Sender: FDA-Public Use
  Company Number: FR-ASTRAZENECA-2012SE56503

PATIENT
  Age: 7405 Day
  Sex: Female

DRUGS (5)
  1. ACETAMINOPHEN [Concomitant]
  2. TRAMADOL HCL [Concomitant]
  3. FRAGMIN [Concomitant]
  4. KETOPROFEN [Suspect]
     Route: 042
     Dates: start: 20120612, end: 20120615
  5. NAROPIN [Suspect]
     Indication: PROCEDURAL PAIN
     Route: 008
     Dates: start: 20120612, end: 20120616

REACTIONS (2)
  - LEUKOPENIA [None]
  - NEUTROPENIA [None]
